FAERS Safety Report 16468321 (Version 1)
Quarter: 2019Q2

REPORT INFORMATION
  Report Type: Report from Study
  Country: PL (occurrence: PL)
  Receive Date: 20190624
  Receipt Date: 20190624
  Transmission Date: 20190711
  Serious: Yes (Death)
  Sender: FDA-Public Use
  Company Number: PHHY2019PL142250

PATIENT
  Age: 67 Year

DRUGS (1)
  1. ELTROMBOPAG [Suspect]
     Active Substance: ELTROMBOPAG
     Indication: APLASTIC ANAEMIA
     Dosage: 25 MG - 2 PACKAGE (56 TAB), 50 MG, - 3 PACKAGE (84 TAB)
     Route: 065

REACTIONS (1)
  - Death [Fatal]
